FAERS Safety Report 16975653 (Version 1)
Quarter: 2019Q4

REPORT INFORMATION
  Report Type: Spontaneous
  Country: US (occurrence: US)
  Receive Date: 20191030
  Receipt Date: 20191030
  Transmission Date: 20200122
  Serious: No
  Sender: FDA-Public Use
  Company Number: US-COVIS PHARMA B.V.-2019COV00197

PATIENT
  Age: 19 Year
  Sex: Female
  Weight: 136.05 kg

DRUGS (3)
  1. TOPAMAX [Concomitant]
     Active Substance: TOPIRAMATE
     Dosage: 100 MG, 2X/DAY )AM AND PM)
  2. ALVESCO [Suspect]
     Active Substance: CICLESONIDE
     Indication: WHEEZING
     Dosage: 2 PUFFS, 2X/DAY (AM AND PM)
     Route: 055
     Dates: start: 201907, end: 201908
  3. ALVESCO [Suspect]
     Active Substance: CICLESONIDE
     Indication: ASTHMA
     Dosage: 1 PUFF, 2X/DAY
     Route: 055
     Dates: start: 2019, end: 2019

REACTIONS (5)
  - Somnolence [Recovered/Resolved]
  - Dysgeusia [Recovered/Resolved]
  - Fungal infection [Not Recovered/Not Resolved]
  - Paraesthesia [Recovered/Resolved]
  - General physical condition abnormal [Recovered/Resolved]

NARRATIVE: CASE EVENT DATE: 201907
